FAERS Safety Report 8315405-6 (Version None)
Quarter: 2012Q2

REPORT INFORMATION
  Report Type: 
  Country: None (occurrence: None)
  Receive Date: 20120426
  Receipt Date: 20120423
  Transmission Date: 20120825
  Serious: Yes (Life-Threatening, Hospitalization, Other)
  Sender: FDA-Public Use
  Company Number: US-ELI_LILLY_AND_COMPANY-US201204008538

PATIENT
  Sex: Male

DRUGS (16)
  1. PRAVASTATIN SODIUM [Concomitant]
     Dosage: 20 MG, QD
     Dates: start: 20110614
  2. NAPROXEN [Concomitant]
     Dosage: 500 MG, PRN
     Dates: start: 20090101
  3. GLIPIZIDE [Concomitant]
     Dosage: 5 MG, BID
     Dates: start: 20110101
  4. INDOCIN [Concomitant]
     Dosage: 25 MG, PRN
     Dates: start: 20110711
  5. LOPRESSOR [Concomitant]
     Dosage: 25 MG, BID
     Dates: start: 20110615, end: 20110711
  6. OMEPRAZOLE [Concomitant]
     Dosage: 20 MG, QD
     Dates: start: 20110711
  7. AMBIEN [Concomitant]
     Dosage: 10 MG, PRN
     Dates: start: 20110711
  8. NITROSTAT [Concomitant]
     Dosage: 0.4 MG, PRN
     Dates: start: 20110808
  9. LOTENSIN [Concomitant]
     Dosage: 10 MG, QD
     Dates: start: 20110711
  10. CELEXA [Concomitant]
     Dosage: 20 MG, QD
     Dates: start: 20110711
  11. EFFIENT [Suspect]
     Dosage: 10 MG, QD
     Dates: start: 20110101
  12. CRESTOR [Concomitant]
     Dosage: 5 MG, QD
     Dates: start: 20110614, end: 20110711
  13. ASPIRIN [Concomitant]
     Dosage: 81 MG, QD
     Dates: start: 20110711
  14. LOTENSIN [Concomitant]
     Dosage: 40 MG, QD
     Dates: start: 20110615, end: 20110711
  15. METFORMIN HCL [Concomitant]
     Dosage: 1000 MG, BID
     Dates: start: 20110101
  16. TERAZOSIN HCL [Concomitant]
     Dosage: 2 MG, QD
     Dates: start: 20110808

REACTIONS (8)
  - INTESTINAL PERFORATION [None]
  - CHOLECYSTITIS [None]
  - INFECTIOUS PERITONITIS [None]
  - CHOLELITHIASIS [None]
  - ANAEMIA [None]
  - COLON CANCER [None]
  - ANASTOMOTIC LEAK [None]
  - RECTAL HAEMORRHAGE [None]
